FAERS Safety Report 5140995-4 (Version None)
Quarter: 2006Q4

REPORT INFORMATION
  Report Type: 
  Country: None (occurrence: None)
  Receive Date: 20061025
  Receipt Date: 20061019
  Transmission Date: 20070319
  Serious: Yes (Hospitalization)
  Sender: FDA-Public Use
  Company Number: 146959USA

PATIENT
  Age: 53 Year
  Sex: Female

DRUGS (11)
  1. COPAXONE [Suspect]
     Indication: MULTIPLE SCLEROSIS
     Dosage: (20 MG), SUBCUTANEOUS
     Route: 058
  2. DYAZIDE [Concomitant]
  3. METOPROLOL SUCCINATE [Concomitant]
  4. ROFECOXIB [Concomitant]
  5. MODAFINIL [Concomitant]
  6. ALPRAZOLAM [Concomitant]
  7. LISINOPRIL [Concomitant]
  8. SERTRALINE [Concomitant]
  9. LOMOTIL [Concomitant]
  10. PROMETHAZINE [Concomitant]
  11. CLONAZEPAM [Concomitant]

REACTIONS (3)
  - DIVERTICULAR PERFORATION [None]
  - DIVERTICULITIS [None]
  - PERIDIVERTICULAR ABSCESS [None]
